FAERS Safety Report 19956750 (Version 1)
Quarter: 2021Q4

REPORT INFORMATION
  Report Type: Spontaneous
  Country: LB (occurrence: LB)
  Receive Date: 20211014
  Receipt Date: 20211014
  Transmission Date: 20220303
  Serious: Yes (Death, Other)
  Sender: FDA-Public Use
  Company Number: LB-BOEHRINGERINGELHEIM-2021-BI-132557

PATIENT
  Sex: Female

DRUGS (1)
  1. OFEV [Suspect]
     Active Substance: NINTEDANIB
     Indication: Idiopathic pulmonary fibrosis
     Dosage: PATIENT WAS ADHERING TO THIS PRODUCT
     Dates: start: 2019

REACTIONS (1)
  - Idiopathic pulmonary fibrosis [Fatal]
